FAERS Safety Report 10181566 (Version 1)
Quarter: 2014Q2

REPORT INFORMATION
  Report Type: Spontaneous
  Country: US (occurrence: US)
  Receive Date: 20140519
  Receipt Date: 20140519
  Transmission Date: 20141212
  Serious: Yes (Other)
  Sender: FDA-Public Use
  Company Number: US-PFIZER INC-2014134256

PATIENT
  Age: 53 Year
  Sex: Male
  Weight: 95.24 kg

DRUGS (4)
  1. METFORMIN HCL [Suspect]
     Indication: DIABETES MELLITUS
     Dosage: 1000 MG, 2X/DAY
     Route: 048
  2. GLIPIZIDE [Suspect]
     Indication: DIABETES MELLITUS
     Dosage: 10 MG, 2X/DAY
     Route: 048
  3. LANTUS [Suspect]
     Indication: DIABETES MELLITUS
     Dosage: 30 UNITS SHOT, 1X/DAY AT NIGHT
  4. LYRICA [Concomitant]
     Indication: DIABETIC NEUROPATHY
     Dosage: 75 MG, UNK
     Route: 048
     Dates: start: 201003

REACTIONS (1)
  - Diabetes mellitus inadequate control [Not Recovered/Not Resolved]
